FAERS Safety Report 5973652-2 (Version None)
Quarter: 2008Q4

REPORT INFORMATION
  Report Type: 
  Country: None (occurrence: None)
  Receive Date: 20081201
  Receipt Date: 20081117
  Transmission Date: 20090506
  Serious: Yes (Hospitalization)
  Sender: FDA-Public Use
  Company Number: FR-SANOFI-SYNTHELABO-A02200803460

PATIENT
  Sex: Female

DRUGS (11)
  1. AMITRIPTYLINE HCL [Concomitant]
     Indication: DEPRESSION
     Route: 048
     Dates: start: 20081020, end: 20081026
  2. MEDROL [Concomitant]
     Indication: DRUG USE FOR UNKNOWN INDICATION
     Route: 048
     Dates: start: 20050101, end: 20080101
  3. LEXOMIL [Concomitant]
     Indication: ANXIETY
     Route: 048
     Dates: start: 20081020, end: 20081026
  4. MORPHINE [Concomitant]
     Indication: PAIN
     Route: 048
     Dates: start: 20050101, end: 20081026
  5. MOVICOL [Concomitant]
     Indication: CONSTIPATION
     Route: 048
     Dates: end: 20081026
  6. NITRODERM [Concomitant]
     Indication: ANGINA PECTORIS
     Route: 062
     Dates: end: 20081026
  7. ZOLPIDEM [Concomitant]
     Indication: INSOMNIA
     Route: 048
     Dates: end: 20081026
  8. MOTILYO [Concomitant]
     Indication: NAUSEA
     Route: 048
     Dates: end: 20081026
  9. DOLIPRANE [Concomitant]
     Indication: PAIN
     Route: 048
     Dates: end: 20081026
  10. PROZAC [Interacting]
     Indication: DEPRESSION
     Route: 048
     Dates: end: 20081026
  11. PLAVIX [Suspect]
     Indication: DRUG USE FOR UNKNOWN INDICATION
     Route: 048
     Dates: start: 20030101, end: 20081026

REACTIONS (4)
  - ANAEMIA [None]
  - DRUG INTERACTION [None]
  - GASTRIC HAEMORRHAGE [None]
  - HAEMATEMESIS [None]
